FAERS Safety Report 7904974-3 (Version None)
Quarter: 2011Q4

REPORT INFORMATION
  Report Type: 
  Country: None (occurrence: None)
  Receive Date: 20111108
  Receipt Date: 20111024
  Transmission Date: 20120403
  Serious: Yes (Life-Threatening, Other)
  Sender: FDA-Public Use
  Company Number: 2011MA015749

PATIENT
  Age: 19 Year
  Sex: Male

DRUGS (6)
  1. PHENYTOIN [Suspect]
     Indication: STATUS EPILEPTICUS
     Dosage: IV
     Route: 042
  2. FENTANYL [Suspect]
     Indication: STATUS EPILEPTICUS
     Dosage: IV
     Route: 042
  3. THIOPENTAL SODIUM [Suspect]
     Indication: STATUS EPILEPTICUS
     Dosage: 5 MG/KG.H;IV
     Route: 042
  4. LORAZEPAM [Suspect]
     Indication: STATUS EPILEPTICUS
     Dosage: IV
     Route: 042
  5. MIDAZOLAM HCL [Suspect]
     Indication: STATUS EPILEPTICUS
     Dosage: IV
     Route: 042
  6. PROPOFOL [Suspect]
     Indication: STATUS EPILEPTICUS
     Dosage: 5 MG/KG/H;IV
     Route: 042

REACTIONS (5)
  - BLOOD PRESSURE SYSTOLIC DECREASED [None]
  - CONVULSION [None]
  - STATUS EPILEPTICUS [None]
  - ENCEPHALOPATHY [None]
  - DISEASE RECURRENCE [None]
